FAERS Safety Report 10458868 (Version 1)
Quarter: 2014Q3

REPORT INFORMATION
  Report Type: Spontaneous
  Country: US (occurrence: None)
  Receive Date: 20140916
  Receipt Date: 20140916
  Transmission Date: 20150326
  Serious: Yes (Other)
  Sender: FDA-Public Use
  Company Number: None

PATIENT
  Age: 55 Year
  Sex: Female
  Weight: 96.16 kg

DRUGS (16)
  1. FOLIC ACID. [Concomitant]
     Active Substance: FOLIC ACID
  2. CARISOPRODOL. [Concomitant]
     Active Substance: CARISOPRODOL
  3. OXYCODONE [Concomitant]
     Active Substance: OXYCODONE
  4. PROTONIX [Concomitant]
     Active Substance: PANTOPRAZOLE SODIUM
  5. LASIX [Concomitant]
     Active Substance: FUROSEMIDE
  6. PREMARIN [Concomitant]
     Active Substance: ESTROGENS, CONJUGATED
  7. ZOFRAN [Concomitant]
     Active Substance: ONDANSETRON HYDROCHLORIDE
  8. METOPROLOL XL [Concomitant]
     Active Substance: METOPROLOL
  9. GABAPENTIN. [Concomitant]
     Active Substance: GABAPENTIN
  10. METHOTREXATE [Concomitant]
     Active Substance: METHOTREXATE
  11. PLAQUENIL [Concomitant]
     Active Substance: HYDROXYCHLOROQUINE SULFATE
  12. PROVERA [Concomitant]
     Active Substance: MEDROXYPROGESTERONE ACETATE
  13. BUTRANS [Suspect]
     Active Substance: BUPRENORPHINE
     Indication: PAIN
     Dosage: 10 MCG/HR, 4 PACKS, ONCE, WEEKLY, ON SKIN
     Route: 061
     Dates: start: 20140721, end: 20140729
  14. REMICADE INFUSION [Concomitant]
  15. MIRTAZAPINE. [Concomitant]
     Active Substance: MIRTAZAPINE
  16. ELAVIL HCL [Concomitant]

REACTIONS (6)
  - Application site vesicles [None]
  - Pruritus [None]
  - Application site erythema [None]
  - Skin ulcer [None]
  - Application site pain [None]
  - Pain [None]

NARRATIVE: CASE EVENT DATE: 20140728
